FAERS Safety Report 5407637-1 (Version None)
Quarter: 2007Q3

REPORT INFORMATION
  Report Type: 
  Country: None (occurrence: None)
  Receive Date: 20070713
  Receipt Date: 20070530
  Transmission Date: 20080115
  Serious: No
  Sender: FDA-Public Use
  Company Number: 2007SP002021

PATIENT
  Age: 61 Year
  Sex: Female
  Weight: 63.9572 kg

DRUGS (9)
  1. LUNESTA [Suspect]
     Indication: INSOMNIA
     Dosage: 3 MG; 1X; ORAL
     Route: 048
     Dates: start: 20070529, end: 20070529
  2. PROMETRIUM [Concomitant]
  3. TAZORAC [Concomitant]
  4. AMCINONIDE [Concomitant]
  5. ESTRADIOL [Concomitant]
  6. FOOD SUPPLEMENT [Concomitant]
  7. ALLEGRA [Concomitant]
  8. VITAMIN CAP [Concomitant]
  9. IBUPROFEN [Concomitant]

REACTIONS (1)
  - SOMNOLENCE [None]
